FAERS Safety Report 4663300-6 (Version None)
Quarter: 2005Q2

REPORT INFORMATION
  Report Type: 
  Country: None (occurrence: None)
  Receive Date: 20050513
  Receipt Date: 20050503
  Transmission Date: 20051028
  Serious: Yes (Hospitalization)
  Sender: FDA-Public Use
  Company Number: 500925410/ PHBS2005PTO5808

PATIENT
  Age: 73 Year
  Sex: Female

DRUGS (9)
  1. AK-FLUOR [Suspect]
     Indication: ANGIOGRAM RETINA
     Dosage: INTRAVENOUS
     Route: 042
     Dates: start: 20050317, end: 20050317
  2. METFORMIN [Concomitant]
  3. IMIPRAMINE EMBONATE [Concomitant]
  4. GLICLAZIDE [Concomitant]
  5. CLONIXIN [Concomitant]
  6. LISINALE [Concomitant]
  7. OMEPRAZOLE [Concomitant]
  8. NIFEDIPINE [Concomitant]
  9. CAPTOPRIL [Concomitant]

REACTIONS (3)
  - ANAPHYLACTIC REACTION [None]
  - PHARMACEUTICAL PRODUCT COMPLAINT [None]
  - THERAPEUTIC RESPONSE UNEXPECTED WITH DRUG SUBSTITUTION [None]
